FAERS Safety Report 7331999-1 (Version None)
Quarter: 2011Q1

REPORT INFORMATION
  Report Type: 
  Country: None (occurrence: None)
  Receive Date: 20110304
  Receipt Date: 20101223
  Transmission Date: 20110831
  Serious: No
  Sender: FDA-Public Use
  Company Number: US-TYCO HEALTHCARE/MALLINCKRODT-T201002387

PATIENT
  Sex: Female

DRUGS (3)
  1. EXALGO [Suspect]
     Indication: PAIN
     Dosage: 1 TAB EVERY 12 HRS
     Route: 048
     Dates: start: 20100505, end: 20100520
  2. ATENOLOL [Concomitant]
     Dosage: UNK
  3. OXYCONTIN [Concomitant]
     Dosage: 80 MG, 2 TAB Q 12HR
     Route: 048

REACTIONS (3)
  - URTICARIA [None]
  - DRUG INEFFECTIVE [None]
  - VOMITING [None]
